APPROVED DRUG PRODUCT: ARGATROBAN IN SODIUM CHLORIDE
Active Ingredient: ARGATROBAN
Strength: 50MG/50ML (1MG/ML)
Dosage Form/Route: SOLUTION;INTRAVENOUS
Application: N212035 | Product #001
Applicant: ACCORD HEALTHCARE INC
Approved: Jun 7, 2021 | RLD: Yes | RS: Yes | Type: RX